FAERS Safety Report 18660479 (Version 2)
Quarter: 2021Q1

REPORT INFORMATION
  Report Type: Spontaneous
  Country: PK (occurrence: PK)
  Receive Date: 20201224
  Receipt Date: 20210110
  Transmission Date: 20210419
  Serious: Yes (Death)
  Sender: FDA-Public Use
  Company Number: PK-NOVOPROD-775853

PATIENT
  Age: 60 Year
  Sex: Female
  Weight: 75 kg

DRUGS (1)
  1. NOVOMIX 30 FLEXPEN [Suspect]
     Active Substance: INSULIN ASPART
     Indication: TYPE 2 DIABETES MELLITUS
     Dosage: 32 IU, QD (14+18 UNITS PER DAY)
     Route: 058
     Dates: start: 20190101, end: 20201201

REACTIONS (2)
  - Myocardial infarction [Fatal]
  - Renal failure [Fatal]

NARRATIVE: CASE EVENT DATE: 20201125
